FAERS Safety Report 5792730-4 (Version None)
Quarter: 2008Q2

REPORT INFORMATION
  Report Type: 
  Country: None (occurrence: None)
  Receive Date: 20080624
  Receipt Date: 20080610
  Transmission Date: 20081010
  Serious: Yes (Death)
  Sender: FDA-Public Use
  Company Number: 2008AL005441

PATIENT
  Age: 80 Year
  Sex: Female
  Weight: 47.1741 kg

DRUGS (1)
  1. DIGOXIN [Suspect]
     Indication: ARRHYTHMIA
     Dates: end: 20080328

REACTIONS (5)
  - BRADYCARDIA [None]
  - DIZZINESS [None]
  - FALL [None]
  - HAEMORRHAGE [None]
  - THERAPEUTIC AGENT TOXICITY [None]
